FAERS Safety Report 4456541-4 (Version None)
Quarter: 2004Q3

REPORT INFORMATION
  Report Type: 
  Country: None (occurrence: None)
  Receive Date: 20040921
  Receipt Date: 20040909
  Transmission Date: 20050211
  Serious: Yes (Life-Threatening, Hospitalization, Other)
  Sender: FDA-Public Use
  Company Number: 2004233216GB

PATIENT
  Age: 53 Year
  Sex: Female

DRUGS (3)
  1. DETRUSITOL XL(TOLTERODINE) CAPSULE, PROLONGED RELEASE [Suspect]
     Dosage: 4 MG, QD, ORAL
     Route: 048
     Dates: start: 20040710, end: 20040711
  2. CEPHALEXIN [Concomitant]
  3. ESTRADERM [Concomitant]

REACTIONS (2)
  - DYSPNOEA [None]
  - HYPERSENSITIVITY [None]
